FAERS Safety Report 7769756-4 (Version None)
Quarter: 2011Q3

REPORT INFORMATION
  Report Type: 
  Country: None (occurrence: None)
  Receive Date: 20110922
  Receipt Date: 20110119
  Transmission Date: 20111222
  Serious: No
  Sender: FDA-Public Use
  Company Number: US-ASTRAZENECA-2011SE03465

PATIENT
  Age: 19474 Day
  Sex: Female

DRUGS (1)
  1. SEROQUEL XR [Suspect]
     Indication: SLEEP DISORDER
     Route: 048
     Dates: start: 20090101

REACTIONS (3)
  - NASOPHARYNGITIS [None]
  - INSOMNIA [None]
  - DRUG DOSE OMISSION [None]
